FAERS Safety Report 19050709 (Version 1)
Quarter: 2021Q1

REPORT INFORMATION
  Report Type: Spontaneous
  Country: IN (occurrence: IN)
  Receive Date: 20210324
  Receipt Date: 20210324
  Transmission Date: 20210420
  Serious: Yes (Death, Life-Threatening, Other)
  Sender: FDA-Public Use
  Company Number: IN-AMGEN-INDSP2021041607

PATIENT
  Age: 38 Year
  Sex: Female

DRUGS (2)
  1. CAPECITABINE. [Concomitant]
     Active Substance: CAPECITABINE
     Indication: METASTASES TO BONE
     Dosage: 1000 MILLIGRAM, Q2WK
  2. XGEVA [Suspect]
     Active Substance: DENOSUMAB
     Indication: METASTASES TO BONE
     Dosage: 120 MILLIGRAM, Q4WK
     Route: 058

REACTIONS (6)
  - Cerebellar infarction [Unknown]
  - Death [Fatal]
  - Papilloedema [Not Recovered/Not Resolved]
  - VIth nerve paralysis [Unknown]
  - Cerebral infarction [Unknown]
  - Cerebral venous thrombosis [Unknown]
